FAERS Safety Report 12912362 (Version 1)
Quarter: 2016Q4

REPORT INFORMATION
  Report Type: Spontaneous
  Country: JP (occurrence: JP)
  Receive Date: 20161104
  Receipt Date: 20161104
  Transmission Date: 20170207
  Serious: Yes (Other)
  Sender: FDA-Public Use
  Company Number: JP-JNJFOC-20161025441

PATIENT
  Age: 81 Year
  Sex: Male

DRUGS (2)
  1. INFLIXIMAB, RECOMBINANT [Suspect]
     Active Substance: INFLIXIMAB
     Indication: BEHCET^S SYNDROME
     Dosage: WEEKS 2 AND 6, THEN EVERY 8 WEEKS
     Route: 042
     Dates: start: 200805
  2. INFLIXIMAB, RECOMBINANT [Suspect]
     Active Substance: INFLIXIMAB
     Indication: BEHCET^S SYNDROME
     Dosage: 54 WEEKS
     Route: 042
     Dates: start: 200905

REACTIONS (6)
  - Rash [Unknown]
  - Drug ineffective [Unknown]
  - Infusion related reaction [Unknown]
  - Intestinal haemorrhage [Recovering/Resolving]
  - Intestinal ulcer [Recovering/Resolving]
  - Behcet^s syndrome [Recovering/Resolving]

NARRATIVE: CASE EVENT DATE: 200905
